FAERS Safety Report 8965702 (Version 1)
Quarter: 2012Q4

REPORT INFORMATION
  Report Type: Spontaneous
  Country: US (occurrence: None)
  Receive Date: 20121212
  Receipt Date: 20121212
  Transmission Date: 20130627
  Serious: Yes (Other)
  Sender: FDA-Public Use
  Company Number: None

PATIENT
  Age: 21 Year
  Sex: Male
  Weight: 74.84 kg

DRUGS (3)
  1. DAYQUIL COLD AND FLU [Suspect]
     Indication: COUGH
     Dosage: 1 dose -2 caplets- every 4 hours po
     Dates: start: 20121211, end: 20121211
  2. DAYQUIL COLD AND FLU [Suspect]
     Indication: COLD
     Dosage: 1 dose -2 caplets- every 4 hours po
     Dates: start: 20121211, end: 20121211
  3. DAYQUIL COLD AND FLU [Suspect]
     Indication: SORE THROAT
     Dosage: 1 dose -2 caplets- every 4 hours po
     Dates: start: 20121211, end: 20121211

REACTIONS (8)
  - Dizziness [None]
  - Vision blurred [None]
  - Paraesthesia oral [None]
  - Paraesthesia oral [None]
  - Dizziness [None]
  - Feeling drunk [None]
  - Depressed level of consciousness [None]
  - Hypoaesthesia oral [None]
